FAERS Safety Report 5230351-2 (Version None)
Quarter: 2007Q1

REPORT INFORMATION
  Report Type: 
  Country: None (occurrence: None)
  Receive Date: 20070206
  Receipt Date: 20070126
  Transmission Date: 20070707
  Serious: Yes (Other)
  Sender: FDA-Public Use
  Company Number: US-JNJFOC-20070107209

PATIENT
  Age: 60 Year
  Sex: Female

DRUGS (5)
  1. TOPAMAX [Suspect]
     Route: 048
  2. TOPAMAX [Suspect]
     Indication: MIGRAINE PROPHYLAXIS
     Route: 048
  3. VALTREX [Interacting]
     Indication: DRUG USE FOR UNKNOWN INDICATION
  4. SYNTHROID [Concomitant]
  5. IMITREX [Concomitant]

REACTIONS (11)
  - ALOPECIA [None]
  - AMNESIA [None]
  - CONVULSION [None]
  - DISTURBANCE IN ATTENTION [None]
  - DRUG INEFFECTIVE [None]
  - DRUG INTERACTION [None]
  - HEADACHE [None]
  - INADEQUATE DIET [None]
  - POOR QUALITY SLEEP [None]
  - THYROID NEOPLASM [None]
  - WEIGHT DECREASED [None]
